FAERS Safety Report 24952946 (Version 2)
Quarter: 2025Q1

REPORT INFORMATION
  Report Type: Spontaneous
  Country: CN (occurrence: CN)
  Receive Date: 20250211
  Receipt Date: 20250224
  Transmission Date: 20250408
  Serious: Yes (Other)
  Sender: AMGEN
  Company Number: CN-SERVIER-S25001096

PATIENT

DRUGS (3)
  1. IVABRADINE [Suspect]
     Active Substance: IVABRADINE
     Indication: Heart failure with reduced ejection fraction
     Dosage: 5 MG, BID
     Route: 048
  2. LEVOSIMENDAN [Suspect]
     Active Substance: LEVOSIMENDAN
     Indication: Heart failure with reduced ejection fraction
     Route: 040
  3. DEXTROSE [Suspect]
     Active Substance: DEXTROSE MONOHYDRATE
     Indication: Heart failure with reduced ejection fraction
     Route: 040

REACTIONS (8)
  - Renal impairment [Unknown]
  - Angioedema [Unknown]
  - Hypersensitivity [Unknown]
  - Dizziness [Unknown]
  - Headache [Unknown]
  - Cough [Unknown]
  - Hypotension [Unknown]
  - Drug ineffective [Recovered/Resolved]
